FAERS Safety Report 6248722-4 (Version None)
Quarter: 2009Q2

REPORT INFORMATION
  Report Type: 
  Country: None (occurrence: None)
  Receive Date: 20090629
  Receipt Date: 20090623
  Transmission Date: 20091009
  Serious: Yes (Hospitalization)
  Sender: FDA-Public Use
  Company Number: DE-ASTRAZENECA-2009PK01555

PATIENT
  Age: 44 Year
  Sex: Female

DRUGS (11)
  1. SEROQUEL [Suspect]
     Dosage: 300 - 1200 MG
     Route: 048
     Dates: start: 20060314, end: 20060411
  2. SEROQUEL [Suspect]
     Route: 048
     Dates: start: 20060412, end: 20060522
  3. LEPONEX [Suspect]
     Route: 048
     Dates: start: 20060428, end: 20060501
  4. LEPONEX [Suspect]
     Dosage: 2.5 - 350 MG
     Route: 048
     Dates: start: 20060502, end: 20060522
  5. LEPONEX [Suspect]
     Route: 048
     Dates: start: 20060523, end: 20060526
  6. MTX [Suspect]
     Indication: POLYARTHRITIS
     Dosage: SINCE YEARS
     Route: 058
  7. DECORTIN [Concomitant]
     Indication: POLYARTHRITIS
     Dosage: SINCE YEARS
     Route: 048
     Dates: end: 20060519
  8. DECORTIN [Concomitant]
     Route: 048
     Dates: start: 20060520
  9. FOLSAN [Concomitant]
     Indication: POLYARTHRITIS
     Dosage: SINCE YEARS
     Route: 048
  10. TAVOR [Concomitant]
     Route: 048
     Dates: start: 20060401, end: 20060519
  11. TAVOR [Concomitant]
     Route: 048
     Dates: start: 20060520, end: 20060530

REACTIONS (1)
  - NEUTROPENIA [None]
